FAERS Safety Report 23989927 (Version 2)
Quarter: 2024Q2

REPORT INFORMATION
  Report Type: Report from Study
  Country: IE (occurrence: IE)
  Receive Date: 20240619
  Receipt Date: 20240627
  Transmission Date: 20240715
  Serious: Yes (Hospitalization, Other)
  Sender: FDA-Public Use
  Company Number: IE-BAXTER-2024BAX019741

PATIENT
  Age: 44 Year
  Sex: Male

DRUGS (9)
  1. SODIUM CHLORIDE [Suspect]
     Active Substance: SODIUM CHLORIDE
     Indication: Medication dilution
     Dosage: AT AN UNSPECIFIED DOSE AND FREQUENCY
     Route: 042
     Dates: start: 20240607, end: 20240610
  2. WATER FOR INJECTION [Suspect]
     Active Substance: WATER
     Dosage: AT AN UNSPECIFIED DOSE AND FREQUENCY
     Route: 042
     Dates: start: 20240607, end: 20240610
  3. FLUCLOXACILLIN [Suspect]
     Active Substance: FLUCLOXACILLIN
     Indication: Colitis
     Dosage: 12 G, ONGOING, AT AN UNSPECIFIED FREQUENCY (MANUFACTURER: TEVA PHARMA B.V), (FLUCLOXACILLIN)
     Route: 042
     Dates: start: 20240607, end: 20240610
  4. FLUCLOXACILLIN [Suspect]
     Active Substance: FLUCLOXACILLIN
     Indication: Body temperature abnormal
  5. FLUCLOXACILLIN [Suspect]
     Active Substance: FLUCLOXACILLIN
     Indication: Vomiting
  6. FLUCLOXACILLIN [Suspect]
     Active Substance: FLUCLOXACILLIN
     Indication: Diarrhoea
  7. CITRATE [Suspect]
     Active Substance: CITRIC ACID MONOHYDRATE
     Dosage: AT AN UNSPECIFIED DOSE AND FREQUENCY (CITRATE BUFFER PH 6.5-7.5)
     Route: 042
     Dates: start: 20240607
  8. CEFAZOLIN SODIUM [Suspect]
     Active Substance: CEFAZOLIN SODIUM
     Dosage: UNK
     Route: 065
  9. UNSPECIFIED INGREDIENT [Suspect]
     Active Substance: UNSPECIFIED INGREDIENT
     Dosage: AT AN UNSPECIFIED DOSE AND FREQUENCY
     Route: 065

REACTIONS (4)
  - Body temperature increased [Unknown]
  - Immunosuppression [Unknown]
  - Malaise [Unknown]
  - Lung opacity [Unknown]

NARRATIVE: CASE EVENT DATE: 20240610
